FAERS Safety Report 10565319 (Version 1)
Quarter: 2014Q4

REPORT INFORMATION
  Report Type: Spontaneous
  Country: US (occurrence: None)
  Receive Date: 20141104
  Receipt Date: 20141104
  Transmission Date: 20150529
  Serious: Yes (Hospitalization)
  Sender: FDA-Public Use
  Company Number: None

PATIENT
  Age: 67 Year
  Sex: Female
  Weight: 75 kg

DRUGS (20)
  1. CLINDOMYCIN TOPICAL SOLUTION [Concomitant]
  2. INSULIN [Concomitant]
     Active Substance: INSULIN NOS
  3. ERLOTINIB [Suspect]
     Active Substance: ERLOTINIB
     Indication: NON-SMALL CELL LUNG CANCER METASTATIC
     Route: 048
     Dates: start: 20140917, end: 20141002
  4. ASPIRIN. [Concomitant]
     Active Substance: ASPIRIN
  5. VITAMIN B12 [Concomitant]
     Active Substance: CYANOCOBALAMIN
  6. ERLOTINIB [Concomitant]
     Active Substance: ERLOTINIB
  7. DOXYCYCLINE. [Concomitant]
     Active Substance: DOXYCYCLINE
  8. GLIMEPRIDE [Concomitant]
     Active Substance: GLIMEPIRIDE
  9. CARVEDILOL. [Concomitant]
     Active Substance: CARVEDILOL
  10. HYDRALAZINE [Concomitant]
     Active Substance: HYDRALAZINE HYDROCHLORIDE
  11. AMLODIPINE [Concomitant]
     Active Substance: AMLODIPINE BESYLATE
  12. PREDNISONE. [Concomitant]
     Active Substance: PREDNISONE
  13. LASIX [Concomitant]
     Active Substance: FUROSEMIDE
  14. TRAMADOL [Concomitant]
     Active Substance: TRAMADOL
  15. BEVACIZUMAB [Suspect]
     Active Substance: BEVACIZUMAB
     Indication: EGFR GENE MUTATION
     Route: 042
     Dates: start: 20140917
  16. ALBUTERAL INHALER [Concomitant]
  17. ADVAIR HFA [Concomitant]
     Active Substance: FLUTICASONE PROPIONATE\SALMETEROL XINAFOATE
  18. LORAZEPAM. [Concomitant]
     Active Substance: LORAZEPAM
  19. TAMSULOSIN [Concomitant]
     Active Substance: TAMSULOSIN
  20. GABAPENTIN. [Concomitant]
     Active Substance: GABAPENTIN

REACTIONS (4)
  - Rash [None]
  - Dyspnoea [None]
  - Proteinuria [None]
  - Pleural effusion [None]

NARRATIVE: CASE EVENT DATE: 20141026
